FAERS Safety Report 4428099-7 (Version None)
Quarter: 2004Q3

REPORT INFORMATION
  Report Type: 
  Country: None (occurrence: None)
  Receive Date: 20040813
  Receipt Date: 20040730
  Transmission Date: 20050211
  Serious: Yes (Hospitalization)
  Sender: FDA-Public Use
  Company Number: A-US2004-07009

PATIENT
  Age: 45 Year
  Sex: Female

DRUGS (9)
  1. TRACLEER [Suspect]
     Indication: PULMONARY HYPERTENSION
     Dosage: SEE IMAGE
     Route: 048
     Dates: start: 20040424, end: 20020514
  2. TRACLEER [Suspect]
     Indication: PULMONARY HYPERTENSION
     Dosage: SEE IMAGE
     Route: 048
     Dates: start: 20020515, end: 20040630
  3. NEXIUM [Concomitant]
  4. PRAVACHOL [Concomitant]
  5. COUMADIN [Concomitant]
  6. PREMARIN [Concomitant]
  7. PREDNISONE TAB [Concomitant]
  8. ALTACE [Concomitant]
  9. RIFABUTIN (RIFABUTIN) [Concomitant]

REACTIONS (3)
  - ALANINE AMINOTRANSFERASE INCREASED [None]
  - ASPARTATE AMINOTRANSFERASE INCREASED [None]
  - MYCOBACTERIUM AVIUM COMPLEX INFECTION [None]
